FAERS Safety Report 8484441-1 (Version None)
Quarter: 2012Q3

REPORT INFORMATION
  Report Type: 
  Country: None (occurrence: None)
  Receive Date: 20120703
  Receipt Date: 20120618
  Transmission Date: 20120928
  Serious: Yes (Death)
  Sender: FDA-Public Use
  Company Number: US-MYLANLABS-2012S1000501

PATIENT
  Age: 50 Year
  Sex: Male
  Weight: 107.96 kg

DRUGS (13)
  1. FENTANYL-100 [Suspect]
     Indication: PAIN
     Route: 062
     Dates: start: 20081223, end: 20090101
  2. GABAPENTIN [Concomitant]
  3. CYCLOBENZAPRINE [Concomitant]
  4. CYMBALTA [Concomitant]
  5. OXYCODONE HCL [Concomitant]
  6. HYDROXYZINE [Concomitant]
  7. KETOROLAC TROMETHAMINE [Concomitant]
  8. DOXYCYCLINE HYCLATE [Concomitant]
  9. VENLAFAXINE [Concomitant]
  10. TRAMADOL HCL [Concomitant]
  11. VIAGRA [Concomitant]
  12. NORTRIPTYLINE HCL [Concomitant]
  13. CLONAZEPAM [Concomitant]

REACTIONS (2)
  - OVERDOSE [None]
  - TOXICITY TO VARIOUS AGENTS [None]
